FAERS Safety Report 6981332-X (Version None)
Quarter: 2010Q3

REPORT INFORMATION
  Report Type: 
  Country: None (occurrence: None)
  Receive Date: 20100909
  Receipt Date: 20100825
  Transmission Date: 20110219
  Serious: Yes (Death, Hospitalization)
  Sender: FDA-Public Use
  Company Number: AE 2010-225

PATIENT
  Age: 46 Year
  Sex: Male

DRUGS (15)
  1. FAZACLO ODT [Suspect]
     Indication: CATATONIA
     Dosage: 275-800 MG DAILY ORAL
     Route: 048
     Dates: start: 20081007, end: 20100822
  2. FAZACLO ODT [Suspect]
     Indication: SCHIZOPHRENIA
     Dosage: 275-800 MG DAILY ORAL
     Route: 048
     Dates: start: 20081007, end: 20100822
  3. ZYPREXA [Concomitant]
  4. KLONOPIN [Concomitant]
  5. HALDOL [Concomitant]
  6. SYNTHROID [Concomitant]
  7. COLACE [Concomitant]
  8. ALLOPURINOL [Concomitant]
  9. NIXIUM [Concomitant]
  10. COGENTIN [Concomitant]
  11. INVEGA [Concomitant]
  12. FERROUS SULFATE [Concomitant]
  13. ZINC [Concomitant]
  14. ASCORBIC ACID [Concomitant]
  15. ASPIRIN [Concomitant]

REACTIONS (5)
  - ABNORMAL BEHAVIOUR [None]
  - ANAEMIA [None]
  - CONSTIPATION [None]
  - CONVULSION [None]
  - HEAD BANGING [None]
